FAERS Safety Report 5787623-2 (Version None)
Quarter: 2008Q2

REPORT INFORMATION
  Report Type: 
  Country: None (occurrence: None)
  Receive Date: 20080625
  Receipt Date: 20071109
  Transmission Date: 20081010
  Serious: No
  Sender: FDA-Public Use
  Company Number: US-ASTRAZENECA-2007UW24792

PATIENT
  Age: 72 Year
  Sex: Female
  Weight: 65.8 kg

DRUGS (8)
  1. PULMICORT FLEXHALER [Suspect]
     Indication: ASTHMA
     Route: 055
     Dates: start: 20071015
  2. SOTALOL HCL [Concomitant]
  3. COUMADIN [Concomitant]
  4. VERAPAMIL [Concomitant]
  5. NEXIUM [Concomitant]
     Route: 048
  6. NASONEX [Concomitant]
  7. LIPITOR [Concomitant]
  8. LISINOPRIL [Concomitant]
     Route: 048

REACTIONS (1)
  - THROAT IRRITATION [None]
